FAERS Safety Report 13635922 (Version 1)
Quarter: 2017Q2

REPORT INFORMATION
  Report Type: Spontaneous
  Country: US (occurrence: US)
  Receive Date: 20170609
  Receipt Date: 20170609
  Transmission Date: 20170830
  Serious: No
  Sender: FDA-Public Use
  Company Number: US-PFIZER INC-2017088450

PATIENT
  Age: 57 Year
  Sex: Female

DRUGS (1)
  1. XELJANZ XR [Suspect]
     Active Substance: TOFACITINIB CITRATE
     Indication: FELTY^S SYNDROME
     Dosage: 11 MG, DAILY

REACTIONS (8)
  - Depression [Unknown]
  - Sleep disorder [Unknown]
  - Grip strength decreased [Unknown]
  - Drug ineffective for unapproved indication [Unknown]
  - Insomnia [Unknown]
  - Arthralgia [Unknown]
  - Joint crepitation [Unknown]
  - Tenderness [Unknown]
